FAERS Safety Report 19455478 (Version 1)
Quarter: 2021Q2

REPORT INFORMATION
  Report Type: Spontaneous
  Country: US (occurrence: US)
  Receive Date: 20210623
  Receipt Date: 20210623
  Transmission Date: 20210717
  Serious: Yes (Hospitalization)
  Sender: FDA-Public Use
  Company Number: None

PATIENT
  Age: 28 Year
  Sex: Female
  Weight: 99 kg

DRUGS (2)
  1. MEDROXYPROGESTERONE ACETATE. [Suspect]
     Active Substance: MEDROXYPROGESTERONE ACETATE
     Dosage: ?          OTHER FREQUENCY:Q11?13 WEEKS;?
     Route: 030
     Dates: start: 20210623
  2. ALBUTEROL SULFATE. [Concomitant]
     Active Substance: ALBUTEROL SULFATE
     Dates: start: 20210101, end: 20210623

REACTIONS (3)
  - Taste disorder [None]
  - Hypoaesthesia [None]
  - Dyspnoea [None]

NARRATIVE: CASE EVENT DATE: 20210623
